FAERS Safety Report 18995500 (Version 2)
Quarter: 2021Q2

REPORT INFORMATION
  Report Type: Spontaneous
  Country: GB (occurrence: GB)
  Receive Date: 20210310
  Receipt Date: 20210524
  Transmission Date: 20210717
  Serious: Yes (Life-Threatening, Hospitalization, Disabling, Other)
  Sender: FDA-Public Use
  Company Number: GB-SUN PHARMACEUTICAL INDUSTRIES LTD-2021RR-284953

PATIENT
  Age: 42 Year
  Sex: Female
  Weight: 98 kg

DRUGS (98)
  1. DOXYCYCLINE. [Suspect]
     Active Substance: DOXYCYCLINE
     Dosage: 164 MILLIGRAM, MONTHLY
     Route: 042
     Dates: start: 20160830
  2. TRASTUZUMAB. [Suspect]
     Active Substance: TRASTUZUMAB
     Indication: BREAST CANCER METASTATIC
     Dosage: 798 MILLIGRAM, MONTHLY, LOADING
     Route: 042
     Dates: start: 20160718, end: 20160830
  3. TRASTUZUMAB. [Suspect]
     Active Substance: TRASTUZUMAB
     Dosage: 420 MILLIGRAM
     Route: 042
     Dates: start: 20160808, end: 20160830
  4. CHLORHEXIDINE [Concomitant]
     Active Substance: CHLORHEXIDINE
     Indication: COLITIS ISCHAEMIC
     Dosage: UNK
     Route: 065
  5. CITALOPRAM [Concomitant]
     Active Substance: CITALOPRAM HYDROBROMIDE
     Indication: DEPRESSION
     Dosage: 20 MG, QD
     Route: 048
     Dates: start: 20160921
  6. DALTEPARIN [Concomitant]
     Active Substance: DALTEPARIN
     Indication: ACUTE KIDNEY INJURY
     Dosage: UNK
     Route: 065
  7. METRONIDAZOLE. [Concomitant]
     Active Substance: METRONIDAZOLE
     Indication: COLITIS ISCHAEMIC
     Dosage: UNK
     Route: 065
  8. PROPOFOL. [Concomitant]
     Active Substance: PROPOFOL
     Indication: COLITIS ISCHAEMIC
     Dosage: UNK
     Route: 065
  9. TRANEXAMIC ACID. [Concomitant]
     Active Substance: TRANEXAMIC ACID
     Indication: PRODUCT USED FOR UNKNOWN INDICATION
     Dosage: UNK
     Route: 065
  10. ZOPICLONE [Concomitant]
     Active Substance: ZOPICLONE
     Indication: PRODUCT USED FOR UNKNOWN INDICATION
     Dosage: UNK
     Route: 065
  11. HARTMANS [Concomitant]
     Indication: NEUTROPENIC SEPSIS
     Dosage: UNK
     Route: 065
  12. PERTUZUMAB. [Suspect]
     Active Substance: PERTUZUMAB
     Dosage: 420 MILLIGRAM, MONTHLY, 840MG FIRST DOSE THEN 420MG
     Route: 042
     Dates: start: 20160808, end: 20160830
  13. ERDOTIN [Concomitant]
     Active Substance: ERDOSTEINE
     Indication: PNEUMONIA
     Dosage: UNK
     Route: 065
  14. FONDAPARINUX [Concomitant]
     Active Substance: FONDAPARINUX
     Indication: COLITIS ISCHAEMIC
     Dosage: UNK
     Route: 065
  15. GLUCOSE [Concomitant]
     Active Substance: DEXTROSE
     Dosage: UNK
     Route: 042
  16. SODIUM LACTATE. [Concomitant]
     Active Substance: SODIUM LACTATE
     Indication: PRODUCT USED FOR UNKNOWN INDICATION
     Dosage: UNK
     Route: 065
  17. MIDAZOLAM. [Concomitant]
     Active Substance: MIDAZOLAM
     Indication: COLITIS ISCHAEMIC
     Dosage: UNK
     Route: 065
  18. NASEPTIN [Concomitant]
     Active Substance: CHLORHEXIDINE HYDROCHLORIDE\NEOMYCIN SULFATE
     Dosage: UNK
     Route: 065
  19. PARACETAMOL [Concomitant]
     Active Substance: ACETAMINOPHEN
     Indication: PAIN
     Dosage: 1 G, UNK
     Route: 048
     Dates: start: 20160908
  20. DOCETAXEL. [Suspect]
     Active Substance: DOCETAXEL
     Dosage: 160 MILLIGRAM, MONTHLY, QMO
     Route: 042
     Dates: start: 20160708
  21. DOXYCYCLINE. [Suspect]
     Active Substance: DOXYCYCLINE
     Indication: BREAST CANCER METASTATIC
     Dosage: 160 MILLIGRAM, MONTHLY
     Route: 042
     Dates: start: 20160808
  22. DOXYCYCLINE. [Suspect]
     Active Substance: DOXYCYCLINE
     Dosage: 160 MILLIGRAM, MONTHLY
     Route: 042
     Dates: start: 20160718
  23. PERTUZUMAB. [Suspect]
     Active Substance: PERTUZUMAB
     Indication: BREAST CANCER METASTATIC
     Dosage: 840 MILLIGRAM, LOADING DOSE
     Route: 042
     Dates: start: 20160718, end: 20160718
  24. ALTEPLASE. [Concomitant]
     Active Substance: ALTEPLASE
     Indication: COLITIS ISCHAEMIC
     Dosage: UNK
     Route: 065
  25. CHLORPHENAMINE [Concomitant]
     Active Substance: CHLORPHENIRAMINE MALEATE
     Indication: NEUTROPENIC SEPSIS
     Dosage: UNK
     Route: 065
  26. CLOPIDOGREL [Concomitant]
     Active Substance: CLOPIDOGREL BISULFATE
     Indication: PNEUMONIA
     Dosage: UNK
     Route: 065
  27. DOXYCYCLINE. [Concomitant]
     Active Substance: DOXYCYCLINE
     Indication: PRODUCT USED FOR UNKNOWN INDICATION
     Dosage: UNK
     Route: 065
  28. FLUCLOXACILLIN [Concomitant]
     Active Substance: FLUCLOXACILLIN
     Indication: PRODUCT USED FOR UNKNOWN INDICATION
     Dosage: UNK
     Route: 065
  29. FLUCONAZOLE. [Concomitant]
     Active Substance: FLUCONAZOLE
     Indication: NEUTROPENIC SEPSIS
     Dosage: UNK
     Route: 065
  30. HYDROCORTISONE. [Concomitant]
     Active Substance: HYDROCORTISONE
     Indication: NEUTROPENIC SEPSIS
     Dosage: UNK
     Route: 065
  31. MAGNASPARTATE [Concomitant]
     Dosage: UNK
     Route: 065
  32. MORPHINE SULPHATE [Concomitant]
     Active Substance: MORPHINE SULFATE
     Indication: PRODUCT USED FOR UNKNOWN INDICATION
     Dosage: UNK
     Route: 065
  33. NOREPINEPHRINE. [Concomitant]
     Active Substance: NOREPINEPHRINE
     Indication: PRODUCT USED FOR UNKNOWN INDICATION
     Dosage: UNK
     Route: 065
  34. TEICOPLANIN [Concomitant]
     Active Substance: TEICOPLANIN
     Indication: COLITIS ISCHAEMIC
     Dosage: UNK
     Route: 065
  35. DOCETAXEL. [Suspect]
     Active Substance: DOCETAXEL
     Indication: BREAST CANCER METASTATIC
     Dosage: 164 MILLIGRAM, MONTHLY, QMO
     Route: 042
     Dates: start: 20160830
  36. DOCETAXEL. [Suspect]
     Active Substance: DOCETAXEL
     Dosage: 160 MILLIGRAM, MONTHLY, QMO
     Route: 042
     Dates: start: 20160808, end: 20160808
  37. CIPROFLOXACIN. [Concomitant]
     Active Substance: CIPROFLOXACIN
     Indication: NEUTROPENIC SEPSIS
     Dosage: UNK
     Route: 065
  38. ERDOSTEINE [Concomitant]
     Active Substance: ERDOSTEINE
     Indication: PNEUMONIA
     Dosage: UNK
     Route: 065
  39. ERYTHROMYCIN. [Concomitant]
     Active Substance: ERYTHROMYCIN
     Indication: NEUTROPENIC SEPSIS
     Dosage: UNK
     Route: 065
  40. FILGRASTIM [Concomitant]
     Active Substance: FILGRASTIM
     Indication: NEUTROPENIC SEPSIS
     Dosage: UNK
     Route: 065
  41. GLUCOSE [Concomitant]
     Active Substance: DEXTROSE
     Indication: NEUTROPENIC SEPSIS
     Dosage: UNK
     Route: 065
  42. LANSOPRAZOLE. [Concomitant]
     Active Substance: LANSOPRAZOLE
     Indication: COLITIS ISCHAEMIC
     Dosage: 30 MILLIGRAM, DAILY
     Route: 048
     Dates: start: 20160908
  43. LOPERAMIDE [Concomitant]
     Active Substance: LOPERAMIDE
     Indication: DIARRHOEA
     Dosage: 2 MILLIGRAM, UP TO 4 TIMES A DAY IF NEEDED FOR LOOSE
     Route: 048
     Dates: start: 20161230
  44. MAGNESIUM SULFATE. [Concomitant]
     Active Substance: MAGNESIUM SULFATE
     Indication: PRODUCT USED FOR UNKNOWN INDICATION
     Dosage: UNK
     Route: 065
  45. MEROPENEM. [Concomitant]
     Active Substance: MEROPENEM
     Indication: PRODUCT USED FOR UNKNOWN INDICATION
     Dosage: UNK
     Route: 065
  46. ORAMORPH [Concomitant]
     Active Substance: MORPHINE SULFATE
     Indication: PRODUCT USED FOR UNKNOWN INDICATION
     Dosage: UNK
     Route: 065
  47. TINZAPARIN [Concomitant]
     Active Substance: TINZAPARIN
     Indication: PRODUCT USED FOR UNKNOWN INDICATION
     Dosage: UNK
     Route: 065
  48. GLUCOGEL [Concomitant]
     Indication: NEUTROPENIC SEPSIS
     Dosage: UNK
     Route: 065
  49. SANDO K [Concomitant]
     Indication: ACUTE KIDNEY INJURY
     Dosage: UNK
     Route: 065
  50. ALFENTANIL. [Concomitant]
     Active Substance: ALFENTANIL
     Indication: PRODUCT USED FOR UNKNOWN INDICATION
     Dosage: UNK
     Route: 065
  51. BUSCOPAN [Concomitant]
     Active Substance: BUTYLSCOPOLAMINE BROMIDE
     Indication: COLITIS ISCHAEMIC
     Dosage: UNK
     Route: 065
  52. CALCIUM GLUCONATE. [Concomitant]
     Active Substance: CALCIUM GLUCONATE
     Indication: COLITIS ISCHAEMIC
     Dosage: UNK
     Route: 065
  53. CODEINE [Concomitant]
     Active Substance: CODEINE
     Indication: PRODUCT USED FOR UNKNOWN INDICATION
     Dosage: UNK
     Route: 065
  54. DANAPAROID [Concomitant]
     Active Substance: DANAPAROID
     Indication: PRODUCT USED FOR UNKNOWN INDICATION
     Dosage: UNK
     Route: 065
  55. DIAZEPAM. [Concomitant]
     Active Substance: DIAZEPAM
     Indication: COLITIS ISCHAEMIC
     Dosage: UNK
     Route: 048
  56. DIHYDROCODEINE [Concomitant]
     Active Substance: DIHYDROCODEINE
     Indication: PAIN
     Dosage: 30 MILLIGRAM, UNK
     Route: 048
     Dates: start: 20160908
  57. EPOPROSTENOL. [Concomitant]
     Active Substance: EPOPROSTENOL
     Indication: ACUTE KIDNEY INJURY
     Dosage: UNK
     Route: 065
  58. HEPARIN [Concomitant]
     Active Substance: HEPARIN SODIUM
     Indication: ACUTE KIDNEY INJURY
     Dosage: UNK
     Route: 065
  59. METOCLOPRAMIDE. [Concomitant]
     Active Substance: METOCLOPRAMIDE
     Indication: COLITIS ISCHAEMIC
     Dosage: UNK
     Route: 065
  60. SANDOCAL 1000 [Concomitant]
     Indication: ACUTE KIDNEY INJURY
     Dosage: UNK
     Route: 065
  61. TAZOCIN [Concomitant]
     Active Substance: PIPERACILLIN SODIUM\TAZOBACTAM SODIUM
     Indication: NEUTROPENIC SEPSIS
     Dosage: UNK
     Route: 065
  62. PERTUZUMAB. [Suspect]
     Active Substance: PERTUZUMAB
     Dosage: 840 MILLIGRAM, LOADING DOSE
     Route: 042
     Dates: start: 20160718, end: 20160808
  63. TRASTUZUMAB. [Suspect]
     Active Substance: TRASTUZUMAB
     Dosage: 609 MILLIGRAM, MONTHLY
     Route: 042
     Dates: start: 20160830, end: 20160830
  64. BISOPROLOL [Concomitant]
     Active Substance: BISOPROLOL
     Indication: ACUTE KIDNEY INJURY
     Dosage: UNK
     Route: 065
  65. CYCLIZINE [Concomitant]
     Active Substance: CYCLIZINE
     Indication: NAUSEA
     Dosage: 50 MILLIGRAM, AS NEEDED
     Route: 048
     Dates: start: 20160908
  66. GTN [Concomitant]
     Active Substance: NITROGLYCERIN
     Indication: PRODUCT USED FOR UNKNOWN INDICATION
     Dosage: UNK
     Route: 065
  67. POTASSIUM CHLORIDE. [Concomitant]
     Active Substance: POTASSIUM CHLORIDE
     Indication: PRODUCT USED FOR UNKNOWN INDICATION
     Dosage: UNK
     Route: 065
  68. MAGNASPARTATE [Concomitant]
     Indication: BLOOD MAGNESIUM DECREASED
     Dosage: 10 MILLIMOLE, UNK
     Route: 065
     Dates: start: 20160908
  69. NASEPTIN [Concomitant]
     Active Substance: CHLORHEXIDINE HYDROCHLORIDE\NEOMYCIN SULFATE
     Indication: COLITIS ISCHAEMIC
     Dosage: UNK
     Route: 065
  70. OMEPRAZOLE. [Concomitant]
     Active Substance: OMEPRAZOLE
     Indication: COLITIS ISCHAEMIC
     Dosage: UNK
     Route: 065
  71. ONDANSETRON [Concomitant]
     Active Substance: ONDANSETRON
     Indication: NAUSEA
     Dosage: 4 MG, UNK
     Route: 048
     Dates: start: 20160908
  72. SALBUTAMOL [Concomitant]
     Active Substance: ALBUTEROL
     Indication: PNEUMONIA
     Dosage: UNK
     Route: 065
  73. ARGATROBAN. [Concomitant]
     Active Substance: ARGATROBAN
     Indication: COLITIS ISCHAEMIC
     Dosage: UNK
     Route: 065
  74. BONJELA [Concomitant]
     Active Substance: CETALKONIUM CHLORIDE\CHOLINE SALICYLATE\MENTHOL
     Indication: NEUTROPENIC SEPSIS
     Dosage: UNK
     Route: 065
  75. DEXTROSE. [Concomitant]
     Active Substance: DEXTROSE
     Indication: PRODUCT USED FOR UNKNOWN INDICATION
     Dosage: UNK
     Route: 065
  76. FRUSEMIDE [Concomitant]
     Active Substance: FUROSEMIDE
     Indication: ACUTE KIDNEY INJURY
     Dosage: UNK
     Route: 065
  77. POTASSIUM CHLORIDE. [Concomitant]
     Active Substance: POTASSIUM CHLORIDE
     Dosage: UNK
     Route: 065
  78. CALCIUM CHLORIDE. [Concomitant]
     Active Substance: CALCIUM CHLORIDE
     Indication: PRODUCT USED FOR UNKNOWN INDICATION
     Dosage: UNK
     Route: 065
  79. MORPHINE [Concomitant]
     Active Substance: MORPHINE
     Indication: PRODUCT USED FOR UNKNOWN INDICATION
     Dosage: UNK
     Route: 065
  80. OXYNORM [Concomitant]
     Active Substance: OXYCODONE HYDROCHLORIDE
     Indication: PAIN
     Dosage: UNK
     Route: 065
  81. SODIUM CITRATE. [Concomitant]
     Active Substance: SODIUM CITRATE
     Indication: PRODUCT USED FOR UNKNOWN INDICATION
     Dosage: UNK
     Route: 065
  82. TAUROLIDINE [Concomitant]
     Active Substance: TAUROLIDINE
     Indication: PRODUCT USED FOR UNKNOWN INDICATION
     Dosage: UNK
     Route: 065
  83. TOLTERODINE [Concomitant]
     Active Substance: TOLTERODINE
     Indication: ACUTE KIDNEY INJURY
     Dosage: UNK
     Route: 065
  84. LETROZOLE. [Suspect]
     Active Substance: LETROZOLE
     Indication: HER2 POSITIVE BREAST CANCER
     Dosage: 2.5 MILLIGRAM, QD
     Route: 048
     Dates: start: 20170124
  85. DOCETAXEL. [Suspect]
     Active Substance: DOCETAXEL
     Dosage: 160 MILLIGRAM, MONTHLY, QMO (TOTAL LOADING DOSE)
     Route: 042
     Dates: start: 20160718
  86. DOXYCYCLINE. [Suspect]
     Active Substance: DOXYCYCLINE
     Dosage: 160 MILLIGRAM, MONTHLY
     Route: 042
     Dates: start: 20160708
  87. TRASTUZUMAB. [Suspect]
     Active Substance: TRASTUZUMAB
     Dosage: 588 MILLIGRAM, MONTHLY, QMO
     Route: 042
     Dates: start: 20160808, end: 20160808
  88. ASPIRIN. [Concomitant]
     Active Substance: ASPIRIN
     Indication: COLITIS ISCHAEMIC
     Dosage: UNK
     Route: 065
  89. FRAGMIN [Concomitant]
     Active Substance: DALTEPARIN SODIUM
     Indication: VOMITING
     Dosage: UNK
     Route: 065
  90. GENTAMICIN. [Concomitant]
     Active Substance: GENTAMICIN
     Indication: PRODUCT USED FOR UNKNOWN INDICATION
     Dosage: UNK
     Route: 065
  91. LEVOMEPROMAZINE [Concomitant]
     Active Substance: LEVOMEPROMAZINE
     Indication: PRODUCT USED FOR UNKNOWN INDICATION
     Dosage: UNK
     Route: 065
  92. METARAMINOL [Concomitant]
     Active Substance: METARAMINOL
     Indication: COLITIS ISCHAEMIC
     Dosage: UNK
     Route: 065
  93. NORADRENALINE [Concomitant]
     Active Substance: NOREPINEPHRINE
     Indication: PRODUCT USED FOR UNKNOWN INDICATION
     Dosage: UNK
     Route: 065
  94. RAMIPRIL. [Concomitant]
     Active Substance: RAMIPRIL
     Indication: ACUTE KIDNEY INJURY
     Dosage: UNK
     Route: 065
  95. POTASSIUM BICARBONATE. [Concomitant]
     Active Substance: POTASSIUM BICARBONATE
     Indication: ACUTE KIDNEY INJURY
     Dosage: UNK
     Route: 065
  96. TINZAPARIN [Concomitant]
     Active Substance: TINZAPARIN
     Dosage: UNK
     Route: 065
  97. VASOPRESSIN. [Concomitant]
     Active Substance: VASOPRESSIN
     Indication: NEUTROPENIC SEPSIS
     Dosage: UNK
     Route: 065
  98. TAUROLOCK [Concomitant]
     Active Substance: TAUROLIDINE
     Indication: PRODUCT USED FOR UNKNOWN INDICATION
     Dosage: UNK
     Route: 065

REACTIONS (10)
  - Diarrhoea [Recovering/Resolving]
  - Perforation [Recovering/Resolving]
  - Neutropenic sepsis [Recovered/Resolved]
  - Peritonitis [Recovering/Resolving]
  - Colitis ischaemic [Recovered/Resolved]
  - Pneumonia [Recovered/Resolved]
  - Acute kidney injury [Recovered/Resolved]
  - Abdominal pain [Recovered/Resolved with Sequelae]
  - Colitis [Recovered/Resolved]
  - Vomiting [Recovered/Resolved with Sequelae]

NARRATIVE: CASE EVENT DATE: 20160907
